FAERS Safety Report 8248625-X (Version None)
Quarter: 2012Q1

REPORT INFORMATION
  Report Type: 
  Country: None (occurrence: None)
  Receive Date: 20120330
  Receipt Date: 20111108
  Transmission Date: 20120608
  Serious: Yes (Other)
  Sender: FDA-Public Use
  Company Number: PHHO2011TW021885

PATIENT
  Sex: Female
  Weight: 50.8 kg

DRUGS (3)
  1. TELBIVUDINE [Suspect]
     Indication: HEPATITIS B
     Route: 048
     Dates: start: 20101028
  2. SILYMARIN [Concomitant]
     Indication: HEPATITIS CHRONIC ACTIVE
     Route: 048
     Dates: start: 20100716, end: 20110316
  3. CLOMIPHENE CITRATE [Concomitant]
     Route: 048
     Dates: start: 20110422, end: 20110426

REACTIONS (2)
  - HAEMORRHAGE IN PREGNANCY [None]
  - MATERNAL EXPOSURE DURING PREGNANCY [None]
